FAERS Safety Report 5839466-9 (Version None)
Quarter: 2008Q3

REPORT INFORMATION
  Report Type: 
  Country: None (occurrence: None)
  Receive Date: 20080807
  Receipt Date: 20080731
  Transmission Date: 20090109
  Serious: Yes (Hospitalization)
  Sender: FDA-Public Use
  Company Number: 2008SP014538

PATIENT
  Age: 28 Year
  Sex: Male
  Weight: 53 kg

DRUGS (7)
  1. PEG-INTRON [Suspect]
     Indication: HEPATITIS B
     Dosage: 80 MCG;, 30 MCG;, 30 MCG;, 50 MCG;, 80 MCG;
     Dates: start: 20080220, end: 20080226
  2. PEG-INTRON [Suspect]
     Indication: HEPATITIS B
     Dosage: 80 MCG;, 30 MCG;, 30 MCG;, 50 MCG;, 80 MCG;
     Dates: start: 20080304, end: 20080318
  3. PEG-INTRON [Suspect]
     Indication: HEPATITIS B
     Dosage: 80 MCG;, 30 MCG;, 30 MCG;, 50 MCG;, 80 MCG;
     Dates: start: 20080325, end: 20080413
  4. PEG-INTRON [Suspect]
     Indication: HEPATITIS B
     Dosage: 80 MCG;, 30 MCG;, 30 MCG;, 50 MCG;, 80 MCG;
     Dates: start: 20080414, end: 20080512
  5. PEG-INTRON [Suspect]
     Indication: HEPATITIS B
     Dosage: 80 MCG;, 30 MCG;, 30 MCG;, 50 MCG;, 80 MCG;
     Dates: start: 20080513, end: 20080717
  6. PEG-INTRON [Suspect]
  7. CHLORPHENIRAMINE MALEATE [Concomitant]

REACTIONS (1)
  - HEPATITIS B [None]
